FAERS Safety Report 24388779 (Version 1)
Quarter: 2024Q4

REPORT INFORMATION
  Report Type: Spontaneous
  Country: US (occurrence: None)
  Receive Date: 20241002
  Receipt Date: 20241002
  Transmission Date: 20250115
  Serious: Yes (Other)
  Sender: Public
  Company Number: None

PATIENT
  Age: 56 Year
  Sex: Male
  Weight: 78.75 kg

DRUGS (2)
  1. SUTAB [Suspect]
     Active Substance: MAGNESIUM SULFATE\POTASSIUM CHLORIDE\SODIUM SULFATE
     Indication: Bowel preparation
     Dosage: OTHER QUANTITY : 12 TABLET(S);?OTHER FREQUENCY : 1 EVERY 5 MINUTES;?
     Route: 048
     Dates: start: 20241001, end: 20241001
  2. BENICAR [Concomitant]
     Active Substance: OLMESARTAN MEDOXOMIL

REACTIONS (3)
  - Dyspnoea [None]
  - Flushing [None]
  - Ocular hyperaemia [None]

NARRATIVE: CASE EVENT DATE: 20241001
